FAERS Safety Report 12196084 (Version 1)
Quarter: 2016Q1

REPORT INFORMATION
  Report Type: Spontaneous
  Country: US (occurrence: US)
  Receive Date: 20160321
  Receipt Date: 20160321
  Transmission Date: 20160526
  Serious: No
  Sender: FDA-Public Use
  Company Number: US-ENDO PHARMACEUTICALS INC.-2015-003681

PATIENT
  Age: 80 Year
  Sex: Male
  Weight: 70.82 kg

DRUGS (1)
  1. XIAFLEX [Suspect]
     Active Substance: COLLAGENASE CLOSTRIDIUM HISTOLYTICUM
     Indication: DUPUYTREN^S CONTRACTURE
     Route: 065
     Dates: start: 20151027, end: 20151027

REACTIONS (1)
  - Chills [Not Recovered/Not Resolved]

NARRATIVE: CASE EVENT DATE: 20151027
